FAERS Safety Report 18236854 (Version 1)
Quarter: 2020Q3

REPORT INFORMATION
  Report Type: Spontaneous
  Country: DE (occurrence: DE)
  Receive Date: 20200907
  Receipt Date: 20200907
  Transmission Date: 20201103
  Serious: Yes (Other)
  Sender: FDA-Public Use
  Company Number: DE-ACCORD-199496

PATIENT
  Age: 42 Year
  Sex: Female

DRUGS (7)
  1. ATORVASTATIN [Concomitant]
     Active Substance: ATORVASTATIN
     Dosage: USE FOR A LONG TIME
  2. PANTOPRAZOLE [Concomitant]
     Active Substance: PANTOPRAZOLE
     Dosage: USE FOR A LONG TIME
  3. SERTRALINE [Suspect]
     Active Substance: SERTRALINE HYDROCHLORIDE
     Indication: PRODUCT USED FOR UNKNOWN INDICATION
     Dates: start: 20190630, end: 20190714
  4. AMITRIPTYLINE [Suspect]
     Active Substance: AMITRIPTYLINE
     Indication: PRODUCT USED FOR UNKNOWN INDICATION
     Dosage: USE FOR A LONG TIME
  5. L?THYROXIN [Concomitant]
     Active Substance: LEVOTHYROXINE SODIUM
     Dosage: USE FOR A LONG TIME
  6. SERTRALINE [Suspect]
     Active Substance: SERTRALINE HYDROCHLORIDE
     Indication: PRODUCT USED FOR UNKNOWN INDICATION
     Dates: start: 20190715, end: 20200114
  7. SERTRALINE [Suspect]
     Active Substance: SERTRALINE HYDROCHLORIDE
     Indication: PRODUCT USED FOR UNKNOWN INDICATION
     Dates: start: 20200115, end: 20200122

REACTIONS (3)
  - Tension [Unknown]
  - Hyperhidrosis [Recovered/Resolved]
  - Cardiac discomfort [Unknown]

NARRATIVE: CASE EVENT DATE: 2019
